FAERS Safety Report 15700742 (Version 4)
Quarter: 2019Q3

REPORT INFORMATION
  Report Type: Spontaneous
  Country: US (occurrence: US)
  Receive Date: 20181207
  Receipt Date: 20190807
  Transmission Date: 20191004
  Serious: No
  Sender: FDA-Public Use
  Company Number: US-SA-2018SA332622

PATIENT
  Age: 45 Year
  Sex: Female

DRUGS (7)
  1. MOTRIN IB [Concomitant]
     Active Substance: IBUPROFEN
  2. BUSPIRONE HCL [Concomitant]
     Active Substance: BUSPIRONE HYDROCHLORIDE
  3. VITAMIN D [VITAMIN D NOS] [Concomitant]
     Active Substance: VITAMIN D NOS
  4. AUBAGIO [Suspect]
     Active Substance: TERIFLUNOMIDE
     Indication: MULTIPLE SCLEROSIS
     Dosage: 14 MG, QD
     Route: 048
     Dates: start: 20181101
  5. PLAQUENIL [HYDROXYCHLOROQUINE PHOSPHATE] [Concomitant]
     Active Substance: HYDROXYCHLOROQUINE DIPHOSPHATE
  6. GABAPENTIN. [Concomitant]
     Active Substance: GABAPENTIN
  7. TUMS [Concomitant]
     Active Substance: CALCIUM CARBONATE
     Dosage: 200 (500) MG TAB CHEW

REACTIONS (8)
  - Hypoaesthesia [Unknown]
  - Pain [Unknown]
  - Dry skin [Unknown]
  - Carpal tunnel syndrome [Not Recovered/Not Resolved]
  - Condition aggravated [Unknown]
  - Alopecia [Unknown]
  - Paraesthesia [Unknown]
  - Paraesthesia [Unknown]

NARRATIVE: CASE EVENT DATE: 201812
